FAERS Safety Report 14127037 (Version 1)
Quarter: 2017Q4

REPORT INFORMATION
  Report Type: Report from Study
  Country: CZ (occurrence: CZ)
  Receive Date: 20171026
  Receipt Date: 20171026
  Transmission Date: 20180321
  Serious: Yes (Death, Hospitalization)
  Sender: FDA-Public Use
  Company Number: CZ-SUN PHARMACEUTICAL INDUSTRIES LTD-2017R1-152411

PATIENT
  Age: 35 Year
  Sex: Male

DRUGS (1)
  1. PARACETAMOL [Suspect]
     Active Substance: ACETAMINOPHEN
     Indication: TOOTHACHE
     Dosage: 8 G, DAILY
     Route: 048

REACTIONS (4)
  - Toxicity to various agents [Fatal]
  - Metabolic acidosis [Fatal]
  - Intentional overdose [Fatal]
  - Hepatorenal failure [Fatal]
